FAERS Safety Report 24445995 (Version 1)
Quarter: 2024Q4

REPORT INFORMATION
  Report Type: Spontaneous
  Country: US (occurrence: None)
  Receive Date: 20241016
  Receipt Date: 20241016
  Transmission Date: 20250115
  Serious: Yes (Hospitalization)
  Sender: Public
  Company Number: None

PATIENT
  Age: 30 Year
  Sex: Female
  Weight: 56.7 kg

DRUGS (2)
  1. VANCOMYCIN [Suspect]
     Active Substance: VANCOMYCIN
     Indication: Endocarditis
     Dosage: FREQUENCY : TWICE A DAY;?
     Route: 042
     Dates: start: 20240726, end: 20240806
  2. CEFEPIME [Suspect]
     Active Substance: CEFEPIME HYDROCHLORIDE
     Indication: Endocarditis
     Dosage: FREQUENCY : 3 TIMES A DAY;?
     Route: 042
     Dates: start: 20240726, end: 20240806

REACTIONS (8)
  - Multiple allergies [None]
  - Discomfort [None]
  - Headache [None]
  - Speech disorder [None]
  - Pyrexia [None]
  - Tricuspid valve disease [None]
  - Dysarthria [None]
  - Vancomycin infusion reaction [None]

NARRATIVE: CASE EVENT DATE: 20240806
